FAERS Safety Report 6072096-5 (Version None)
Quarter: 2009Q1

REPORT INFORMATION
  Report Type: 
  Country: None (occurrence: None)
  Receive Date: 20090210
  Receipt Date: 20090209
  Transmission Date: 20090719
  Serious: Yes (Other)
  Sender: FDA-Public Use
  Company Number: A0767327A

PATIENT
  Age: 58 Year
  Sex: Female

DRUGS (2)
  1. NICODERM CQ [Suspect]
     Indication: SMOKING CESSATION THERAPY
     Route: 062
     Dates: start: 20090125, end: 20090128
  2. COMMIT [Suspect]
     Indication: SMOKING CESSATION THERAPY
     Route: 002

REACTIONS (18)
  - ANOREXIA [None]
  - APPLICATION SITE PAIN [None]
  - APPLICATION SITE RASH [None]
  - DIARRHOEA [None]
  - DISTURBANCE IN ATTENTION [None]
  - DYSPEPSIA [None]
  - EAR PAIN [None]
  - FAECES DISCOLOURED [None]
  - FEELING HOT [None]
  - HEADACHE [None]
  - HICCUPS [None]
  - HYPERHIDROSIS [None]
  - HYPERSOMNIA [None]
  - LETHARGY [None]
  - LYMPHADENOPATHY [None]
  - NAUSEA [None]
  - TOBACCO POISONING [None]
  - VOMITING [None]
